FAERS Safety Report 24657281 (Version 1)
Quarter: 2024Q4

REPORT INFORMATION
  Report Type: Report from Study
  Country: US (occurrence: US)
  Receive Date: 20241125
  Receipt Date: 20241125
  Transmission Date: 20250115
  Serious: Yes (Other)
  Sender: ABBVIE
  Company Number: US-ABBVIE-5947922

PATIENT
  Age: 61 Year
  Sex: Female

DRUGS (1)
  1. RINVOQ [Suspect]
     Active Substance: UPADACITINIB
     Indication: Psoriatic arthropathy
     Route: 048
     Dates: start: 20240620

REACTIONS (4)
  - Eustachian tube disorder [Not Recovered/Not Resolved]
  - Ear discomfort [Not Recovered/Not Resolved]
  - Poor quality sleep [Unknown]
  - Headache [Unknown]

NARRATIVE: CASE EVENT DATE: 20240101
